FAERS Safety Report 10220164 (Version 3)
Quarter: 2014Q3

REPORT INFORMATION
  Report Type: Spontaneous
  Country: NL (occurrence: NL)
  Receive Date: 20140605
  Receipt Date: 20140821
  Transmission Date: 20150326
  Serious: Yes (Hospitalization)
  Sender: FDA-Public Use
  Company Number: NL-009507513-1406NLD002580

PATIENT
  Age: 27 Year
  Sex: Female
  Weight: 63 kg

DRUGS (4)
  1. OMEPRAZOLE. [Concomitant]
     Active Substance: OMEPRAZOLE
     Dosage: 20 MG, QD (1 CAPSULE A DAY A 20MG)
     Route: 048
     Dates: start: 2014
  2. AMITRIPTYLINE HYDROCHLORIDE. [Suspect]
     Active Substance: AMITRIPTYLINE HYDROCHLORIDE
     Indication: HEADACHE
     Dosage: 10 MG, QD (1 TIME A DAY 1 UNIT(S), EXTRA INFORMATION 1)
     Route: 048
     Dates: start: 20140410, end: 20140413
  3. AMITRIPTYLINE HYDROCHLORIDE. [Suspect]
     Active Substance: AMITRIPTYLINE HYDROCHLORIDE
     Indication: SLEEP DISORDER
  4. PREDNISOLONE. [Concomitant]
     Active Substance: PREDNISOLONE
     Indication: PRODUCT USED FOR UNKNOWN INDICATION
     Dosage: 5 MG, QD (TIME A DAY 1 UNIT(S), EXTRA INFORMATION 1)
     Route: 048
     Dates: start: 20080723

REACTIONS (3)
  - Confusional state [Recovered/Resolved]
  - Disorientation [Recovered/Resolved]
  - Amnesia [Recovered/Resolved with Sequelae]

NARRATIVE: CASE EVENT DATE: 20140411
